FAERS Safety Report 6263633-6 (Version None)
Quarter: 2009Q3

REPORT INFORMATION
  Report Type: 
  Country: None (occurrence: None)
  Receive Date: 20090710
  Receipt Date: 20090702
  Transmission Date: 20100115
  Serious: Yes (Other)
  Sender: FDA-Public Use
  Company Number: US-BAYER-200925425NA

PATIENT
  Age: 29 Year
  Sex: Female

DRUGS (1)
  1. YAZ [Suspect]
     Indication: CONTRACEPTION
     Route: 048
     Dates: start: 20090101

REACTIONS (6)
  - BLOOD FOLLICLE STIMULATING HORMONE ABNORMAL [None]
  - BLOOD OESTROGEN ABNORMAL [None]
  - BLOOD TESTOSTERONE ABNORMAL [None]
  - FATIGUE [None]
  - IRRITABILITY [None]
  - PITUITARY TUMOUR [None]
